FAERS Safety Report 9593531 (Version 1)
Quarter: 2013Q4

REPORT INFORMATION
  Report Type: Spontaneous
  Country: NL (occurrence: NL)
  Receive Date: 20131004
  Receipt Date: 20131004
  Transmission Date: 20140711
  Serious: Yes (Hospitalization)
  Sender: FDA-Public Use
  Company Number: NL-ROCHE-1280337

PATIENT
  Age: 72 Year
  Sex: Female

DRUGS (2)
  1. XENICAL [Suspect]
     Indication: WEIGHT DECREASED
     Route: 048
     Dates: start: 2009
  2. XENICAL [Suspect]
     Route: 048
     Dates: start: 20120616

REACTIONS (4)
  - Hypotension [Recovered/Resolved]
  - Body temperature decreased [Recovered/Resolved]
  - Rectal haemorrhage [Recovered/Resolved]
  - Malaise [Recovered/Resolved]
